FAERS Safety Report 23368172 (Version 1)
Quarter: 2024Q1

REPORT INFORMATION
  Report Type: Spontaneous
  Country: US (occurrence: US)
  Receive Date: 20240105
  Receipt Date: 20240105
  Transmission Date: 20240410
  Serious: No
  Sender: FDA-Public Use
  Company Number: US-STRIDES ARCOLAB LIMITED-2023SP007768

PATIENT
  Age: 63 Year
  Sex: Male

DRUGS (13)
  1. VANCOMYCIN [Suspect]
     Active Substance: VANCOMYCIN
     Indication: Fusarium infection
     Dosage: UNK
     Route: 065
  2. ACYCLOVIR [Suspect]
     Active Substance: ACYCLOVIR
     Indication: Fusarium infection
     Dosage: UNK
     Route: 065
  3. AMPICILLIN TRIHYDRATE [Suspect]
     Active Substance: AMPICILLIN TRIHYDRATE
     Indication: Fusarium infection
     Dosage: UNK
     Route: 065
  4. VORICONAZOLE [Concomitant]
     Active Substance: VORICONAZOLE
     Indication: Fusarium infection
     Dosage: 400 MILLIGRAM, BID
     Route: 065
  5. VORICONAZOLE [Concomitant]
     Active Substance: VORICONAZOLE
     Dosage: 200 MILLIGRAM, BID
     Route: 065
  6. VORICONAZOLE [Concomitant]
     Active Substance: VORICONAZOLE
     Dosage: UNK; INJECTION; 100MCG PER 0.1ML EVERY 2-4 DAYS
  7. AMPHOTERICIN B [Concomitant]
     Active Substance: AMPHOTERICIN B
     Indication: Fusarium infection
     Dosage: UNK; 5MCG PER 0.1ML; EVERY 5 DAYS
  8. AMPHOTERICIN B [Concomitant]
     Active Substance: AMPHOTERICIN B
     Dosage: 5 MILLIGRAM/KILOGRAM, BID; AMPHOTERICIN-B-LIPOSOMAL
     Route: 065
  9. TERBINAFINE [Concomitant]
     Active Substance: TERBINAFINE
     Indication: Fusarium infection
     Dosage: 250 MILLIGRAM, BID
     Route: 065
  10. POSACONAZOLE [Concomitant]
     Active Substance: POSACONAZOLE
     Indication: Antifungal prophylaxis
     Dosage: UNK
     Route: 065
  11. TACROLIMUS [Concomitant]
     Active Substance: TACROLIMUS
     Indication: Prophylaxis against graft versus host disease
     Dosage: UNK
     Route: 065
  12. MYCOPHENOLATE MOFETIL [Concomitant]
     Active Substance: MYCOPHENOLATE MOFETIL
     Indication: Prophylaxis against graft versus host disease
     Dosage: UNK
     Route: 065
  13. CEFEPIME [Concomitant]
     Active Substance: CEFEPIME HYDROCHLORIDE
     Indication: Fusarium infection
     Dosage: UNK
     Route: 065

REACTIONS (1)
  - Off label use [Unknown]
